FAERS Safety Report 25642925 (Version 2)
Quarter: 2025Q3

REPORT INFORMATION
  Report Type: Report from Study
  Country: US (occurrence: US)
  Receive Date: 20250805
  Receipt Date: 20250925
  Transmission Date: 20251021
  Serious: Yes (Other)
  Sender: GILEAD
  Company Number: US-GILEAD-2025-0722656

PATIENT
  Age: 21 Year
  Sex: Female

DRUGS (2)
  1. AZTREONAM LYSINE [Suspect]
     Active Substance: AZTREONAM LYSINE
     Indication: Cystic fibrosis
     Dosage: INHALE 75MG VIA NEBULIZER THREE TIMES DAILY
     Route: 055
     Dates: start: 20240413
  2. AZTREONAM LYSINE [Suspect]
     Active Substance: AZTREONAM LYSINE
     Route: 055
     Dates: start: 20240413

REACTIONS (11)
  - Mental impairment [Unknown]
  - Hypersomnia [Not Recovered/Not Resolved]
  - Loss of personal independence in daily activities [Unknown]
  - Social problem [Unknown]
  - Sleep disorder [Unknown]
  - Chest pain [Unknown]
  - Vomiting [Unknown]
  - Abdominal pain upper [Unknown]
  - Nasal congestion [Unknown]
  - Chest discomfort [Unknown]
  - Cough [Unknown]

NARRATIVE: CASE EVENT DATE: 20250701
